FAERS Safety Report 17468657 (Version 1)
Quarter: 2020Q1

REPORT INFORMATION
  Report Type: Spontaneous
  Country: FR (occurrence: FR)
  Receive Date: 20200224
  Receipt Date: 20200224
  Transmission Date: 20200409
  Serious: Yes (Hospitalization)
  Sender: FDA-Public Use
  Company Number: NVSC2020FR033800

PATIENT
  Age: 18 Year
  Sex: Male
  Weight: 72 kg

DRUGS (3)
  1. KETOPROFEN. [Suspect]
     Active Substance: KETOPROFEN
     Indication: PROCEDURAL PAIN
     Dosage: UNK
     Route: 048
     Dates: start: 20191101, end: 20191111
  2. VANCOMYCIN [Suspect]
     Active Substance: VANCOMYCIN
     Indication: DEVICE RELATED INFECTION
     Dosage: 3 G, QD
     Route: 042
     Dates: start: 20191109, end: 20191111
  3. CLOXACILLINE [Suspect]
     Active Substance: CLOXACILLIN
     Indication: DEVICE RELATED INFECTION
     Dosage: 2 G, Q6H
     Route: 042
     Dates: start: 20191109, end: 20191113

REACTIONS (3)
  - Renal impairment [Recovered/Resolved]
  - Tubulointerstitial nephritis [Recovered/Resolved]
  - Acute kidney injury [Recovered/Resolved]

NARRATIVE: CASE EVENT DATE: 20191111
